FAERS Safety Report 7748421-3 (Version None)
Quarter: 2011Q3

REPORT INFORMATION
  Report Type: 
  Country: None (occurrence: None)
  Receive Date: 20110914
  Receipt Date: 20110830
  Transmission Date: 20111222
  Serious: Yes (Hospitalization, Disabling, Other)
  Sender: FDA-Public Use
  Company Number: FR-PAR PHARMACEUTICAL, INC-2011SCPR003211

PATIENT

DRUGS (4)
  1. TRAMADOL HCL [Suspect]
     Indication: PRODUCT USED FOR UNKNOWN INDICATION
     Dosage: MAXIMAL INGESTION OF 10 G
     Route: 048
  2. GABAPENTIN [Interacting]
     Indication: PRODUCT USED FOR UNKNOWN INDICATION
     Dosage: MAXIMAL INGESTION OF 1 G
     Route: 048
  3. HYDROXYZINE [Interacting]
     Indication: PRODUCT USED FOR UNKNOWN INDICATION
     Dosage: MAXIMAL INGESTION OF 6 G
     Route: 048
  4. CLONAZEPAM [Interacting]
     Indication: PRODUCT USED FOR UNKNOWN INDICATION
     Dosage: MAXIMAL INGESTION OF 80 MG
     Route: 048

REACTIONS (9)
  - COMA [None]
  - CARDIAC ARREST [None]
  - MENTAL DISABILITY [None]
  - SHOCK [None]
  - TOXICITY TO VARIOUS AGENTS [None]
  - DRUG INTERACTION [None]
  - RENAL FAILURE ACUTE [None]
  - CONVULSION [None]
  - VENTRICULAR TACHYCARDIA [None]
